FAERS Safety Report 23629050 (Version 1)
Quarter: 2024Q1

REPORT INFORMATION
  Report Type: Spontaneous
  Country: US (occurrence: US)
  Receive Date: 20240313
  Receipt Date: 20240313
  Transmission Date: 20240410
  Serious: No
  Sender: FDA-Public Use
  Company Number: US-Millicent Holdings Ltd.-MILL20240768

PATIENT
  Sex: Female

DRUGS (1)
  1. FEMRING [Suspect]
     Active Substance: ESTRADIOL ACETATE
     Indication: Product used for unknown indication
     Dosage: 0.05 MG / DAY
     Route: 067
     Dates: start: 2024

REACTIONS (3)
  - Vulvovaginal discomfort [Unknown]
  - Product use issue [None]
  - Wrong technique in product usage process [None]

NARRATIVE: CASE EVENT DATE: 20240101
